FAERS Safety Report 7009925-4 (Version None)
Quarter: 2010Q3

REPORT INFORMATION
  Report Type: 
  Country: None (occurrence: None)
  Receive Date: 20100923
  Receipt Date: 20100915
  Transmission Date: 20110219
  Serious: Yes (Hospitalization)
  Sender: FDA-Public Use
  Company Number: US-ABBOTT-10P-163-0671334-00

PATIENT
  Sex: Female
  Weight: 76.272 kg

DRUGS (8)
  1. SYNTHROID [Suspect]
     Indication: PRODUCT USED FOR UNKNOWN INDICATION
     Dates: start: 20090101
  2. NEXIUM [Concomitant]
     Indication: PRODUCT USED FOR UNKNOWN INDICATION
  3. LIPITOR [Concomitant]
     Indication: PRODUCT USED FOR UNKNOWN INDICATION
  4. CALCIUM W/MAGNESIUM/ZINC [Concomitant]
     Indication: PRODUCT USED FOR UNKNOWN INDICATION
  5. VITAMIN B 50 COMPLEX [Concomitant]
     Indication: PRODUCT USED FOR UNKNOWN INDICATION
  6. CELEBREX [Concomitant]
     Indication: ARTHRITIS
     Dosage: AS REQUIRED ONCE DAILY
  7. CLARITIN [Concomitant]
     Indication: HYPERSENSITIVITY
  8. CO Q10 [Concomitant]
     Indication: MUSCLE SPASMS

REACTIONS (8)
  - DIZZINESS [None]
  - EXOSTOSIS [None]
  - FALL [None]
  - HEAD INJURY [None]
  - HYPOAESTHESIA [None]
  - NAUSEA [None]
  - PARAESTHESIA [None]
  - WEIGHT INCREASED [None]
